FAERS Safety Report 5661023-8 (Version None)
Quarter: 2008Q1

REPORT INFORMATION
  Report Type: 
  Country: None (occurrence: None)
  Receive Date: 20080311
  Receipt Date: 20080306
  Transmission Date: 20080703
  Serious: Yes (Other)
  Sender: FDA-Public Use
  Company Number: JP-BOEHRINGER INGELHEIM GMBH, GERMANY-2008-BP-00875NB

PATIENT
  Sex: Female

DRUGS (7)
  1. BI-SIFROL TABLETS [Suspect]
     Indication: PARKINSON'S DISEASE
     Route: 048
     Dates: start: 20070709, end: 20071218
  2. ARICEPT [Suspect]
     Indication: DEMENTIA
     Route: 048
     Dates: start: 20070725, end: 20080122
  3. CALBLOCK [Concomitant]
     Indication: CARDIAC FAILURE
     Route: 048
     Dates: start: 20060101
  4. MADOPAR (LEVODOPA_BENSERAZIDE HYDROCHLORIDE) [Concomitant]
     Indication: PARKINSON'S DISEASE
     Route: 048
     Dates: start: 20070709, end: 20071218
  5. FLUITRAN [Concomitant]
     Indication: CARDIAC FAILURE
     Route: 048
     Dates: start: 20060101
  6. MEVALOTIN [Concomitant]
     Indication: CARDIAC FAILURE
     Route: 048
     Dates: start: 20060101
  7. DIOVAN [Concomitant]
     Indication: CARDIAC FAILURE
     Route: 048
     Dates: start: 20060101

REACTIONS (1)
  - DYSTONIA [None]
